FAERS Safety Report 7162540-4 (Version None)
Quarter: 2010Q4

REPORT INFORMATION
  Report Type: 
  Country: None (occurrence: None)
  Receive Date: 20101215
  Receipt Date: 20091118
  Transmission Date: 20110411
  Serious: Yes (Hospitalization)
  Sender: FDA-Public Use
  Company Number: CH-PFIZER INC-2009299103

PATIENT
  Sex: Male
  Weight: 88 kg

DRUGS (3)
  1. LYRICA [Suspect]
     Indication: NEURALGIA
     Dosage: 75 MG, 1X/DAY
     Route: 048
     Dates: start: 20090801, end: 20090807
  2. DAFALGAN [Concomitant]
     Indication: PAIN
     Dosage: 1 G, 1X/DAY
     Route: 048
     Dates: start: 20090702, end: 20090807
  3. JOHANNISKRAUT [Concomitant]
     Indication: DEPRESSED MOOD
     Dosage: 500 MG, 4X/DAY
     Route: 048
     Dates: start: 20090401, end: 20090807

REACTIONS (5)
  - AFFECT LABILITY [None]
  - CHILLS [None]
  - COMMUNICATION DISORDER [None]
  - MUSCULOSKELETAL STIFFNESS [None]
  - VISUAL IMPAIRMENT [None]
